FAERS Safety Report 5159172-6 (Version None)
Quarter: 2006Q4

REPORT INFORMATION
  Report Type: 
  Country: None (occurrence: None)
  Receive Date: 20061114
  Receipt Date: 20061103
  Transmission Date: 20070319
  Serious: Yes (Other)
  Sender: FDA-Public Use
  Company Number: CHPA2006US11147

PATIENT
  Age: 70 Year
  Sex: Male
  Weight: 74.4 kg

DRUGS (1)
  1. EXCEDRIN (MIGRAINE) [Suspect]
     Indication: MUSCLE ATROPHY
     Dosage: ORAL
     Route: 048
     Dates: start: 19961001

REACTIONS (3)
  - DRUG ABUSER [None]
  - DRUG INEFFECTIVE [None]
  - HEADACHE [None]
